FAERS Safety Report 9774591 (Version 1)
Quarter: 2013Q4

REPORT INFORMATION
  Report Type: Spontaneous
  Country: US (occurrence: None)
  Receive Date: 20131219
  Receipt Date: 20131219
  Transmission Date: 20140711
  Serious: Yes (Life-Threatening, Hospitalization)
  Sender: FDA-Public Use
  Company Number: None

PATIENT
  Age: 71 Year
  Sex: Male
  Weight: 74.5 kg

DRUGS (1)
  1. BACTRIM [Suspect]
     Indication: LACERATION
     Dates: start: 20131130, end: 20131207

REACTIONS (4)
  - Asthenia [None]
  - Decreased appetite [None]
  - Stevens-Johnson syndrome [None]
  - Toxic epidermal necrolysis [None]
